FAERS Safety Report 10868827 (Version 3)
Quarter: 2015Q1

REPORT INFORMATION
  Report Type: Spontaneous
  Country: JP (occurrence: JP)
  Receive Date: 20150225
  Receipt Date: 20150330
  Transmission Date: 20150721
  Serious: Yes (Other)
  Sender: FDA-Public Use
  Company Number: JP-PFIZER INC-2015066835

PATIENT
  Age: 35 Year
  Sex: Male
  Weight: 70 kg

DRUGS (9)
  1. PURSENNID [Concomitant]
     Active Substance: SENNOSIDES A AND B
     Dosage: 12 MG, DAILY
     Route: 048
  2. CLARITIN [Concomitant]
     Active Substance: LORATADINE
     Dosage: 10 MG, DAILY
     Route: 048
  3. GASMOTIN [Concomitant]
     Active Substance: MOSAPRIDE CITRATE
     Dosage: 15 MG, DAILY
     Route: 048
  4. ASPARA POTASSIUM [Concomitant]
     Active Substance: POTASSIUM ASPARTATE
     Dosage: 600 MG, DAILY
     Route: 048
  5. SOLU-CORTEF [Concomitant]
     Active Substance: HYDROCORTISONE SODIUM SUCCINATE
     Indication: HYPOPITUITARISM
     Dosage: UNK
     Route: 042
  6. THYRADIN S [Concomitant]
     Active Substance: LEVOTHYROXINE SODIUM
     Dosage: 1 DF, DAILY
     Route: 048
  7. CORTRIL [Suspect]
     Active Substance: HYDROCORTISONE
     Indication: HYPOPITUITARISM
     Dosage: 120 MG, DAILY
     Route: 048
     Dates: start: 201502
  8. CORTRIL [Suspect]
     Active Substance: HYDROCORTISONE
     Dosage: 80 MG/DAY, 2X/DAY (MORNING AND EVENING)
     Route: 048
  9. SOLU-CORTEF [Concomitant]
     Active Substance: HYDROCORTISONE SODIUM SUCCINATE
     Dosage: 50 MG, UNK
     Route: 042

REACTIONS (3)
  - Drug effect incomplete [Unknown]
  - Adrenal insufficiency [Recovering/Resolving]
  - Blood cortisol abnormal [Unknown]

NARRATIVE: CASE EVENT DATE: 20150219
